FAERS Safety Report 24416089 (Version 2)
Quarter: 2024Q4

REPORT INFORMATION
  Report Type: Spontaneous
  Country: PT (occurrence: PT)
  Receive Date: 20241009
  Receipt Date: 20241202
  Transmission Date: 20250114
  Serious: Yes (Other)
  Sender: MYLAN
  Company Number: PT-MYLANLABS-2024M1091873

PATIENT
  Age: 41 Year
  Sex: Female

DRUGS (9)
  1. PALIPERIDONE [Interacting]
     Active Substance: PALIPERIDONE
     Indication: Schizophrenia
     Dosage: 150 MILLIGRAM, MONTHLY
     Route: 065
     Dates: start: 20180223
  2. CLOZAPINE [Interacting]
     Active Substance: CLOZAPINE
     Indication: Schizophrenia
     Dosage: 100 MILLIGRAM; ID PO
     Route: 065
     Dates: start: 2012
  3. CLOZAPINE [Interacting]
     Active Substance: CLOZAPINE
     Dosage: 100 MILLIGRAM; ID PO
     Dates: start: 2018
  4. CLOZAPINE [Interacting]
     Active Substance: CLOZAPINE
     Dosage: 100 MILLIGRAM; ID PO
     Route: 065
     Dates: start: 202207
  5. CLOZAPINE [Interacting]
     Active Substance: CLOZAPINE
     Dosage: 50 MILLIGRAM; ID PO (GRADUALLY REDUCED)
     Route: 065
     Dates: start: 202211
  6. CLOZAPINE [Interacting]
     Active Substance: CLOZAPINE
     Dosage: 75 MILLIGRAM; ID PO (INCREASED)
     Route: 065
     Dates: start: 2012
  7. CLOZAPINE [Interacting]
     Active Substance: CLOZAPINE
     Dosage: UNK; CLOZAPINE WAS INCREASED TO 25 MG AT BREAKFAST AND 100 MG AT BEDTIME
     Route: 065
     Dates: start: 2012
  8. RIFAMPIN [Interacting]
     Active Substance: RIFAMPIN
     Indication: Latent tuberculosis
     Dosage: UNK
     Route: 065
     Dates: start: 20230417
  9. DIAZEPAM [Suspect]
     Active Substance: DIAZEPAM
     Indication: Product used for unknown indication
     Dosage: UNK; 10 MG ID PO AND 10 MG SOS ADDED
     Route: 065

REACTIONS (2)
  - Schizophrenia [Unknown]
  - Drug interaction [Unknown]
